FAERS Safety Report 4510959-X (Version None)
Quarter: 2004Q4

REPORT INFORMATION
  Report Type: 
  Country: None (occurrence: None)
  Receive Date: 20040928
  Receipt Date: 20040604
  Transmission Date: 20050328
  Serious: No
  Sender: FDA-Public Use
  Company Number: 04P-163-0262815-00

PATIENT
  Age: 79 Year
  Sex: Female
  Weight: 47.6277 kg

DRUGS (11)
  1. HUMIRA [Suspect]
     Indication: RHEUMATOID ARTHRITIS
     Dosage: 40 MG, 1 IN 2 WK, SUBCUTANEOUS
     Route: 058
     Dates: start: 20030101
  2. RISEDRONATE SODIUM [Concomitant]
  3. MELOXICAM [Concomitant]
  4. IRON [Concomitant]
  5. CALCIUM [Concomitant]
  6. ASCORBIC ACID [Concomitant]
  7. PREDNISONE [Concomitant]
  8. LEVOTHYROXINE SODIUM [Concomitant]
  9. FOLIC ACID [Concomitant]
  10. TOCOPHEROL CONCENTRATE CAP [Concomitant]
  11. ESTROPIPATE [Concomitant]

REACTIONS (1)
  - RASH [None]
